FAERS Safety Report 5894899-X (Version None)
Quarter: 2008Q3

REPORT INFORMATION
  Report Type: 
  Country: None (occurrence: None)
  Receive Date: 20080924
  Receipt Date: 20080916
  Transmission Date: 20090109
  Serious: Yes (Other)
  Sender: FDA-Public Use
  Company Number: PHBS2006ES17738

PATIENT
  Age: 70 Year
  Sex: Male

DRUGS (4)
  1. ZOLEDRONIC ACID [Suspect]
     Indication: METASTASES TO BONE
     Dosage: 4 MG GIVEN FOR 15 MIN EVERY 3 OR 4 WEEKS
     Route: 042
  2. VINORELBINE [Concomitant]
     Route: 065
  3. CALCIUM GLUCONATE [Concomitant]
     Route: 048
  4. VITAMIN D [Concomitant]
     Route: 048

REACTIONS (1)
  - OSTEONECROSIS [None]
